FAERS Safety Report 5358851-5 (Version None)
Quarter: 2007Q2

REPORT INFORMATION
  Report Type: 
  Country: None (occurrence: None)
  Receive Date: 20070615
  Receipt Date: 20070608
  Transmission Date: 20071010
  Serious: Yes (Death)
  Sender: FDA-Public Use
  Company Number: US-GENENTECH-242747

PATIENT

DRUGS (2)
  1. TNKASE [Suspect]
     Indication: PERIPHERAL ISCHAEMIA
     Route: 013
  2. HEPARIN [Suspect]
     Indication: DRUG USE FOR UNKNOWN INDICATION

REACTIONS (1)
  - AMPUTATION [None]
